FAERS Safety Report 18819980 (Version 1)
Quarter: 2021Q1

REPORT INFORMATION
  Report Type: Report from Study
  Country: IL (occurrence: IL)
  Receive Date: 20210202
  Receipt Date: 20210202
  Transmission Date: 20210419
  Serious: Yes (Other)
  Sender: FDA-Public Use
  Company Number: NVSC2020IL221385

PATIENT
  Age: 64 Year
  Sex: Female
  Weight: 60 kg

DRUGS (4)
  1. BYL719 [Suspect]
     Active Substance: ALPELISIB
     Dosage: 150 MG
     Route: 048
     Dates: start: 20200807, end: 20200924
  2. BYL719 [Suspect]
     Active Substance: ALPELISIB
     Indication: BREAST CANCER
     Dosage: 300 MG
     Route: 048
     Dates: start: 20200614, end: 20200727
  3. BYL719 [Suspect]
     Active Substance: ALPELISIB
     Dosage: 200 MG
     Route: 048
     Dates: start: 20200925, end: 20201201
  4. FASLODEX [Concomitant]
     Active Substance: FULVESTRANT
     Indication: PRODUCT USED FOR UNKNOWN INDICATION
     Dosage: UNK UNK, QD
     Route: 065
     Dates: start: 20200614

REACTIONS (3)
  - Colitis [Unknown]
  - Diarrhoea [Recovering/Resolving]
  - Large intestine perforation [Unknown]

NARRATIVE: CASE EVENT DATE: 20200721
